FAERS Safety Report 4440807-8 (Version None)
Quarter: 2004Q3

REPORT INFORMATION
  Report Type: 
  Country: None (occurrence: None)
  Receive Date: 20040827
  Receipt Date: 20030807
  Transmission Date: 20050211
  Serious: Yes (Disabling, Other)
  Sender: FDA-Public Use
  Company Number: 001-0719-M0100341

PATIENT
  Sex: Female

DRUGS (7)
  1. LOPID [Suspect]
     Indication: ILL-DEFINED DISORDER
     Dosage: 1200 MG (DAILY), ORAL
     Route: 048
     Dates: start: 20000401, end: 20001002
  2. BAYCOL [Suspect]
     Indication: HYPERLIPIDAEMIA
     Dosage: 0.4 MG (DAILY), ORAL
     Route: 048
     Dates: start: 20000912, end: 20000929
  3. LEVOTHYROXINE SODIUM [Concomitant]
  4. CONJUGATED ESTROGEN [Concomitant]
  5. VERAPAMIL [Concomitant]
  6. DIPHENHYDRAMINE HCL [Concomitant]
  7. NICOTNIC ACID [Concomitant]

REACTIONS (3)
  - ABDOMINAL TENDERNESS [None]
  - PALPITATIONS [None]
  - RHABDOMYOLYSIS [None]
